FAERS Safety Report 14561896 (Version 1)
Quarter: 2018Q1

REPORT INFORMATION
  Report Type: Spontaneous
  Country: US (occurrence: US)
  Receive Date: 20180222
  Receipt Date: 20180222
  Transmission Date: 20180509
  Serious: Yes (Other)
  Sender: FDA-Public Use
  Company Number: US-ROCHE-2077048

PATIENT
  Sex: Male

DRUGS (1)
  1. XOLAIR [Suspect]
     Active Substance: OMALIZUMAB
     Indication: ASTHMA
     Route: 058

REACTIONS (4)
  - Oropharyngeal pain [Recovered/Resolved]
  - Benign soft tissue neoplasm [Recovered/Resolved]
  - Musculoskeletal stiffness [Recovered/Resolved]
  - Rash [Recovered/Resolved]
